FAERS Safety Report 13597150 (Version 1)
Quarter: 2017Q2

REPORT INFORMATION
  Report Type: Spontaneous
  Country: FR (occurrence: FR)
  Receive Date: 20170531
  Receipt Date: 20170531
  Transmission Date: 20170830
  Serious: Yes (Hospitalization)
  Sender: FDA-Public Use
  Company Number: FR-EMD SERONO-8158604

PATIENT
  Age: 33 Year
  Sex: Female

DRUGS (4)
  1. GONAL-F [Suspect]
     Active Substance: FOLLITROPIN
     Route: 058
     Dates: start: 20170330, end: 20170401
  2. ORGALUTRAN [Suspect]
     Active Substance: GANIRELIX ACETATE
     Indication: OOCYTE DONOR
     Dosage: FORM STRENGTH: 0.25 MG/0.5 ML
     Route: 058
     Dates: start: 20170330, end: 20170402
  3. DECAPEPTYL                         /00486501/ [Suspect]
     Active Substance: GONADORELIN
     Indication: OOCYTE DONOR
     Route: 058
     Dates: start: 20170402, end: 20170402
  4. GONAL-F [Suspect]
     Active Substance: FOLLITROPIN
     Indication: OOCYTE DONOR
     Route: 058
     Dates: start: 20170324, end: 20170329

REACTIONS (1)
  - Peritoneal haemorrhage [Recovered/Resolved]

NARRATIVE: CASE EVENT DATE: 20170404
